FAERS Safety Report 4542395-4 (Version None)
Quarter: 2004Q4

REPORT INFORMATION
  Report Type: 
  Country: None (occurrence: None)
  Receive Date: 20041227
  Receipt Date: 20041216
  Transmission Date: 20050328
  Serious: Yes (Hospitalization)
  Sender: FDA-Public Use
  Company Number: 2004114106

PATIENT
  Sex: Female

DRUGS (6)
  1. IRINOTECAN HCL [Suspect]
     Indication: PANCREATIC CARCINOMA
     Dosage: INTRAVENOUS
     Route: 042
     Dates: start: 20041215
  2. FLUOROURACIL [Concomitant]
  3. LEUCOVORIN CALCIUM [Concomitant]
  4. ATROPINE [Concomitant]
  5. DEXAMETHASONE [Concomitant]
  6. HYOSCINE (HYOSCINE) [Concomitant]

REACTIONS (2)
  - DYSKINESIA [None]
  - SENSORY DISTURBANCE [None]
